FAERS Safety Report 10712032 (Version 1)
Quarter: 2015Q1

REPORT INFORMATION
  Report Type: Spontaneous
  Country: None (occurrence: US)
  Receive Date: 20150114
  Receipt Date: 20150114
  Transmission Date: 20150721
  Serious: No
  Sender: FDA-Public Use
  Company Number: US-ALLERGAN-1407383US

PATIENT
  Sex: Female

DRUGS (1)
  1. ACZONE [Suspect]
     Active Substance: DAPSONE
     Indication: ACNE
     Dosage: BID-TID
     Route: 061

REACTIONS (5)
  - Erythema [Not Recovered/Not Resolved]
  - Burning sensation [Not Recovered/Not Resolved]
  - Inappropriate schedule of drug administration [Unknown]
  - Acne [Not Recovered/Not Resolved]
  - Pruritus [Not Recovered/Not Resolved]
